FAERS Safety Report 9076406 (Version 1)
Quarter: 2013Q1

REPORT INFORMATION
  Report Type: Spontaneous
  Country: US (occurrence: US)
  Receive Date: 20130129
  Receipt Date: 20130129
  Transmission Date: 20140127
  Serious: No
  Sender: FDA-Public Use
  Company Number: US-ABBOTT-12P-163-0945667-00

PATIENT
  Sex: Female
  Weight: 81.72 kg

DRUGS (10)
  1. HUMIRA 40 MG/0.8 ML PEN [Suspect]
     Indication: RHEUMATOID ARTHRITIS
     Dates: start: 201202
  2. METHOTREXATE [Concomitant]
     Indication: RHEUMATOID ARTHRITIS
  3. FLEXERIL [Concomitant]
     Indication: RHEUMATOID ARTHRITIS
  4. PLAQUINELL [Concomitant]
     Indication: RHEUMATOID ARTHRITIS
  5. TRAMADOL [Concomitant]
     Indication: PAIN
  6. ATENOLOL [Concomitant]
     Indication: HYPERTENSION
  7. METFORMIN [Concomitant]
     Indication: DIABETES MELLITUS
  8. ASPIRIN [Concomitant]
     Indication: CARDIOVASCULAR EVENT PROPHYLAXIS
  9. SIMVASTATIN [Concomitant]
     Indication: BLOOD CHOLESTEROL INCREASED
  10. PREDNISONE [Concomitant]
     Indication: RHEUMATOID ARTHRITIS

REACTIONS (1)
  - Toothache [Not Recovered/Not Resolved]
